FAERS Safety Report 9552292 (Version 10)
Quarter: 2014Q3

REPORT INFORMATION
  Report Type: Spontaneous
  Country: AU (occurrence: AU)
  Receive Date: 20130925
  Receipt Date: 20140801
  Transmission Date: 20150326
  Serious: Yes (Hospitalization, Disabling, Other)
  Sender: FDA-Public Use
  Company Number: AU-ROCHE-1278801

PATIENT
  Age: 65 Year
  Sex: Male

DRUGS (4)
  1. LUCENTIS [Suspect]
     Active Substance: RANIBIZUMAB
     Route: 050
     Dates: start: 20130626
  2. LUCENTIS [Suspect]
     Active Substance: RANIBIZUMAB
     Indication: AGE-RELATED MACULAR DEGENERATION
     Route: 050
     Dates: start: 2011
  3. LUCENTIS [Suspect]
     Active Substance: RANIBIZUMAB
     Route: 050
     Dates: start: 20130506
  4. LUCENTIS [Suspect]
     Active Substance: RANIBIZUMAB
     Route: 050
     Dates: start: 20130820

REACTIONS (32)
  - Neoplasm of cornea unspecified malignancy [Not Recovered/Not Resolved]
  - Feeling abnormal [Recovered/Resolved]
  - Abnormal sensation in eye [Unknown]
  - Glaucoma [Not Recovered/Not Resolved]
  - Drug administered at inappropriate site [Unknown]
  - Pain [Recovered/Resolved]
  - Inner ear disorder [Unknown]
  - Eye haemorrhage [Unknown]
  - Blindness [Not Recovered/Not Resolved]
  - Ocular vascular disorder [Unknown]
  - Intraocular pressure increased [Recovering/Resolving]
  - Photopsia [Recovered/Resolved]
  - Vitreous floaters [Recovered/Resolved]
  - Dizziness [Unknown]
  - Retinal haemorrhage [Unknown]
  - Visual field defect [Not Recovered/Not Resolved]
  - Visual impairment [Recovered/Resolved]
  - Vision blurred [Unknown]
  - Eye injury [Unknown]
  - Optic nerve injury [Not Recovered/Not Resolved]
  - Diplopia [Not Recovered/Not Resolved]
  - Testicular pain [Not Recovered/Not Resolved]
  - Visual field defect [Unknown]
  - Abnormal behaviour [Recovering/Resolving]
  - Headache [Unknown]
  - Dyspnoea [Unknown]
  - Visual acuity reduced [Recovered/Resolved]
  - Retinal detachment [Unknown]
  - Malaise [Unknown]
  - Nausea [Unknown]
  - Tinnitus [Unknown]
  - Macular degeneration [Unknown]

NARRATIVE: CASE EVENT DATE: 20130326
